FAERS Safety Report 6094403-X (Version None)
Quarter: 2009Q1

REPORT INFORMATION
  Report Type: 
  Country: None (occurrence: None)
  Receive Date: 20090226
  Receipt Date: 20090220
  Transmission Date: 20090719
  Serious: Yes (Hospitalization)
  Sender: FDA-Public Use
  Company Number: US-WYE-H08327609

PATIENT
  Age: 22 Year
  Sex: Male
  Weight: 68.1 kg

DRUGS (1)
  1. ROBITUSSIN COUGH AND CHEST CONGESTION DM [Suspect]
     Indication: DRUG USE FOR UNKNOWN INDICATION
     Dosage: UNKNOWN
     Route: 048

REACTIONS (1)
  - PSYCHOMOTOR HYPERACTIVITY [None]
